FAERS Safety Report 17499206 (Version 2)
Quarter: 2022Q2

REPORT INFORMATION
  Report Type: Report from Study
  Country: CH (occurrence: CH)
  Receive Date: 20200305
  Receipt Date: 20220404
  Transmission Date: 20220721
  Serious: Yes (Congenital Anomaly)
  Sender: FDA-Public Use
  Company Number: CH-SA-2020SA050409

PATIENT

DRUGS (4)
  1. ZOLPIDEM TARTRATE [Suspect]
     Active Substance: ZOLPIDEM TARTRATE
     Indication: Maternal exposure during pregnancy
     Dosage: UNK
     Route: 064
  2. LORAZEPAM [Suspect]
     Active Substance: LORAZEPAM
     Indication: Maternal exposure during pregnancy
     Dosage: UNK
     Route: 064
  3. OLANZAPINE [Suspect]
     Active Substance: OLANZAPINE
     Indication: Maternal exposure during pregnancy
     Dosage: UNK
     Route: 064
  4. SERTRALINE [Suspect]
     Active Substance: SERTRALINE HYDROCHLORIDE
     Indication: Maternal exposure during pregnancy
     Route: 064

REACTIONS (2)
  - Prader-Willi syndrome [Unknown]
  - Foetal exposure during pregnancy [Unknown]
